FAERS Safety Report 11979044 (Version 2)
Quarter: 2016Q1

REPORT INFORMATION
  Report Type: Spontaneous
  Country: US (occurrence: US)
  Receive Date: 20160129
  Receipt Date: 20160229
  Transmission Date: 20160526
  Serious: Yes (Hospitalization, Other)
  Sender: FDA-Public Use
  Company Number: US-BAYER-2016-016737

PATIENT
  Age: 33 Year
  Sex: Female
  Weight: 77.98 kg

DRUGS (1)
  1. MIRENA [Suspect]
     Active Substance: LEVONORGESTREL
     Indication: CONTRACEPTION
     Dosage: 20 MCG/24HR, CONT
     Route: 015
     Dates: start: 20091023, end: 20150410

REACTIONS (6)
  - Emotional distress [None]
  - Pain [None]
  - Loss of libido [None]
  - Genital haemorrhage [None]
  - Device use error [None]
  - Uterine perforation [None]

NARRATIVE: CASE EVENT DATE: 2015
